FAERS Safety Report 24316719 (Version 2)
Quarter: 2024Q4

REPORT INFORMATION
  Report Type: Report from Study
  Country: US (occurrence: US)
  Receive Date: 20240913
  Receipt Date: 20241002
  Transmission Date: 20250115
  Serious: Yes (Hospitalization, Other)
  Sender: NOVARTIS
  Company Number: US-002147023-NVSC2024US027525

PATIENT
  Age: 61 Year
  Sex: Female
  Weight: 69.4 kg

DRUGS (23)
  1. ENTRESTO [Suspect]
     Active Substance: SACUBITRIL\VALSARTAN
     Indication: Product used for unknown indication
     Dosage: 24 MG, BID
     Route: 048
  2. ENTRESTO [Suspect]
     Active Substance: SACUBITRIL\VALSARTAN
     Dosage: TAKE 1 TABLET(S) TWICE A DAY BY ORAL ROUTE AS DIRECTED FOR 90 DAYS.
     Route: 048
     Dates: start: 20240409
  3. ENTRESTO [Suspect]
     Active Substance: SACUBITRIL\VALSARTAN
     Dosage: UNK, QD (24.26 MG)
     Route: 048
  4. ALBUTEROL SULFATE [Concomitant]
     Active Substance: ALBUTEROL SULFATE
     Indication: Product used for unknown indication
     Dosage: INHALE TWO PUFFS BY MOUTH EVERY 4 HOURS AS NEEDED
     Route: 065
     Dates: start: 20231118
  5. ATORVASTATIN [Concomitant]
     Active Substance: ATORVASTATIN
     Indication: Product used for unknown indication
     Dosage: TAKE ONE TABLET BY MOUTH EVERY NIGHT AT BEDTIME
     Route: 065
     Dates: start: 20240109
  6. ASPIRIN [Concomitant]
     Active Substance: ASPIRIN
     Indication: Product used for unknown indication
     Dosage: TAKE 1 TABLET(S) EVERY DAY BY ORAL ROUTE
     Route: 048
     Dates: start: 20181029
  7. BUPROPION HYDROCHLORIDE [Concomitant]
     Active Substance: BUPROPION HYDROCHLORIDE
     Indication: Product used for unknown indication
     Dosage: UNK
     Route: 065
     Dates: start: 20231227
  8. CHOLECALCIFEROL [Concomitant]
     Active Substance: CHOLECALCIFEROL
     Indication: Product used for unknown indication
     Dosage: TAKE 1 TABLET TWICE A DAY
     Route: 065
     Dates: start: 20231024
  9. CULTURELLE [Concomitant]
     Active Substance: LACTOBACILLUS RHAMNOSUS
     Indication: Product used for unknown indication
     Dosage: TAKE 1 CAPSULE BY MOUTH EVERYDAY
     Route: 048
     Dates: start: 20230616
  10. CYCLOBENZAPRINE [Concomitant]
     Active Substance: CYCLOBENZAPRINE
     Indication: Product used for unknown indication
     Dosage: TAKE 1 TABLET BY MOUTH 3 TIMES A DAY
     Route: 048
     Dates: start: 20231127
  11. FAMOTIDINE [Concomitant]
     Active Substance: FAMOTIDINE
     Indication: Product used for unknown indication
     Dosage: TAKE 1 TABLET BY MOUTH TWICE A DAY
     Route: 065
     Dates: start: 20240413
  12. FUROSEMIDE [Concomitant]
     Active Substance: FUROSEMIDE
     Indication: Product used for unknown indication
     Dosage: TAKE 1 TABLET BID FOR 90 DAYS
     Route: 065
     Dates: start: 20240420
  13. GABAPENTIN [Concomitant]
     Active Substance: GABAPENTIN
     Indication: Product used for unknown indication
     Dosage: TAKE 1 TABLET(S) 3 TIMES A DAY BY ORAL ROUTE FOR 30 DAYS
     Route: 065
     Dates: start: 20240325
  14. HYDROCODONE [Concomitant]
     Active Substance: HYDROCODONE
     Indication: Product used for unknown indication
     Dosage: TAKE 1 TABLET(S) 4 TIMES A DAY BY ORAL ROUTE AS NEEDED FOR 30 DAYS.
     Route: 048
     Dates: start: 20240422
  15. IPRATROPIUM [Concomitant]
     Active Substance: IPRATROPIUM
     Indication: Product used for unknown indication
     Dosage: UNK
     Route: 065
     Dates: start: 20240409
  16. LIDOCAINE [Concomitant]
     Active Substance: LIDOCAINE
     Indication: Product used for unknown indication
     Dosage: APPLY TO HIP, UP TO 3 PATCHES AT A TIME. LEAVE PATCHES ON FOR 12 TO 14 HOURS PER DAY
     Route: 065
     Dates: start: 20230717
  17. MAGNESIUM [Concomitant]
     Active Substance: MAGNESIUM
     Indication: Product used for unknown indication
     Dosage: TAKE 1 CAPSULE(S) TWICE A DAY BY ORAL ROUTE.
     Route: 065
     Dates: start: 20191010
  18. METOPROLOL SUCCINATE [Concomitant]
     Active Substance: METOPROLOL SUCCINATE
     Indication: Product used for unknown indication
     Dosage: TAKE 1 TABLET BY MOUTH DAILY
     Route: 048
     Dates: start: 20240109
  19. VITAMINS [Concomitant]
     Active Substance: VITAMINS
     Indication: Product used for unknown indication
     Dosage: ONE DAILY
     Route: 065
     Dates: start: 20220926
  20. OMEPRAZOLE [Concomitant]
     Active Substance: OMEPRAZOLE
     Indication: Product used for unknown indication
     Dosage: TAKE 1 CAPSULE BY MOUTH DAILY
     Route: 048
     Dates: start: 20240101
  21. POTASSIUM CHLORIDE [Concomitant]
     Active Substance: POTASSIUM CHLORIDE
     Indication: Product used for unknown indication
     Dosage: TAKE 1 TABLET(S) EVERY DAY BY ORAL ROUTE.
     Route: 048
     Dates: start: 20230726
  22. SYNTHROID [Concomitant]
     Active Substance: LEVOTHYROXINE SODIUM
     Indication: Product used for unknown indication
     Dosage: TAKE 1 TABLET(S) EVERY DAY BY ORAL ROUTE AS DIRECTED FOR 90 DAYS.
     Route: 048
     Dates: start: 20240228
  23. VITAMIN D3 [Concomitant]
     Active Substance: CHOLECALCIFEROL
     Indication: Product used for unknown indication
     Dosage: TAKE 1 TABLET BY MOUTH TWICE A DAY
     Route: 048
     Dates: start: 20240123

REACTIONS (25)
  - Pneumonia [Unknown]
  - Chronic kidney disease [Unknown]
  - Hypothyroidism [Unknown]
  - Hypoxia [Unknown]
  - Oesophageal stenosis [Unknown]
  - Syncope [Unknown]
  - Bronchitis [Unknown]
  - Heart rate irregular [Unknown]
  - Speech disorder [Unknown]
  - Pulmonary function test abnormal [Unknown]
  - Polyuria [Unknown]
  - Weight decreased [Unknown]
  - Chronic left ventricular failure [Unknown]
  - Chronic obstructive pulmonary disease [Unknown]
  - Hypertension [Unknown]
  - Lumbar spinal stenosis [Unknown]
  - Vitamin D deficiency [Unknown]
  - Gastrooesophageal reflux disease [Unknown]
  - Oesophagitis [Unknown]
  - Stress urinary incontinence [Unknown]
  - Osteoarthritis [Unknown]
  - Foot deformity [Unknown]
  - Arthralgia [Unknown]
  - Hyperlipidaemia [Unknown]
  - Off label use [Unknown]

NARRATIVE: CASE EVENT DATE: 20181029
